FAERS Safety Report 7069491-4 (Version None)
Quarter: 2010Q4

REPORT INFORMATION
  Report Type: 
  Country: None (occurrence: None)
  Receive Date: 20101028
  Receipt Date: 20101025
  Transmission Date: 20110411
  Serious: Yes (Death, Hospitalization)
  Sender: FDA-Public Use
  Company Number: FR-B.I. PHARMACEUTICALS,INC./RIDGEFIELD-2010-FF-00855FF

PATIENT
  Sex: Female

DRUGS (9)
  1. TAMSULOSIN HCL [Suspect]
     Route: 048
     Dates: start: 20100728, end: 20100924
  2. ALLOPURINOL [Suspect]
     Dates: start: 20100731, end: 20100920
  3. LEVOTHYROXINE SODIUM [Suspect]
     Route: 048
     Dates: start: 20100723, end: 20100927
  4. FOLIC ACID [Suspect]
     Route: 048
     Dates: start: 20100728, end: 20100927
  5. AMIODARONE [Concomitant]
  6. LASIX [Concomitant]
  7. PREVISCAN [Concomitant]
  8. TRIATEC [Concomitant]
  9. DIFFU K [Concomitant]

REACTIONS (4)
  - DRUG RASH WITH EOSINOPHILIA AND SYSTEMIC SYMPTOMS [None]
  - EOSINOPHILIA [None]
  - ERYTHEMA [None]
  - PRURITUS [None]
